FAERS Safety Report 5274172-3 (Version None)
Quarter: 2007Q1

REPORT INFORMATION
  Report Type: 
  Country: None (occurrence: None)
  Receive Date: 20070323
  Receipt Date: 20070313
  Transmission Date: 20070707
  Serious: Yes (Death)
  Sender: FDA-Public Use
  Company Number: FR-SANOFI-SYNTHELABO-A02200601524

PATIENT
  Age: 62 Year
  Sex: Male
  Weight: 65 kg

DRUGS (6)
  1. PLAVIX [Suspect]
     Indication: STENT PLACEMENT
     Dosage: 150 MG
     Route: 048
     Dates: start: 20050722, end: 20050801
  2. KARDEGIC [Concomitant]
     Indication: STENT PLACEMENT
     Route: 048
     Dates: start: 20050723
  3. LASIX [Concomitant]
     Indication: HYPERTENSION
     Dosage: 80 MG
     Route: 042
     Dates: start: 20050723
  4. OMEPRAZOLE [Concomitant]
     Indication: DRUG USE FOR UNKNOWN INDICATION
     Route: 048
  5. CARDENSIEL [Concomitant]
     Indication: HYPERTENSION
     Dosage: 1.75 MG
     Route: 048
     Dates: start: 20050726
  6. TAHOR [Concomitant]
     Indication: DYSLIPIDAEMIA
     Dosage: 40 MG
     Route: 048
     Dates: start: 20050728

REACTIONS (2)
  - DRUG RESISTANCE [None]
  - STENT OCCLUSION [None]
